FAERS Safety Report 11883554 (Version 1)
Quarter: 2015Q4

REPORT INFORMATION
  Report Type: Spontaneous
  Country: ES (occurrence: ES)
  Receive Date: 20151231
  Receipt Date: 20151231
  Transmission Date: 20160305
  Serious: Yes (Hospitalization)
  Sender: FDA-Public Use
  Company Number: PHHY2015ES170495

PATIENT
  Age: 80 Year
  Sex: Female

DRUGS (15)
  1. ATORVASTATIN [Concomitant]
     Active Substance: ATORVASTATIN
     Indication: PRODUCT USED FOR UNKNOWN INDICATION
     Dosage: 01 TABLET AT NIGHT
     Route: 065
  2. DUSPATALIN//MEBEVERINE EMBONATE [Concomitant]
     Indication: PRODUCT USED FOR UNKNOWN INDICATION
     Dosage: 01 TABLET EVERY 8 HOURS
     Route: 065
  3. HIDROFEROL [Concomitant]
     Active Substance: CALCIFEDIOL
     Indication: PRODUCT USED FOR UNKNOWN INDICATION
     Dosage: ONE AMPOULE EVERY MONDAY
     Route: 065
  4. CYMBALTA [Suspect]
     Active Substance: DULOXETINE HYDROCHLORIDE
     Indication: DEPRESSION
     Dosage: UNK
     Route: 065
     Dates: start: 201507, end: 20150914
  5. FERROUS SULFATE [Concomitant]
     Active Substance: FERROUS SULFATE\FERROUS SULFATE, DRIED
     Indication: IRON DEFICIENCY
     Dosage: UNK
     Route: 065
  6. ADIRO [Concomitant]
     Active Substance: ASPIRIN
     Indication: PRODUCT USED FOR UNKNOWN INDICATION
     Dosage: 01 TABLET DAILY IN THE MORNING
     Route: 065
  7. PANTOPRAZOLE [Concomitant]
     Active Substance: PANTOPRAZOLE SODIUM
     Indication: PRODUCT USED FOR UNKNOWN INDICATION
     Dosage: 01 TABLET AT NIGHT
     Route: 065
  8. NOLOTIL                                 /SPA/ [Concomitant]
     Active Substance: METAMIZOLE
     Indication: PRODUCT USED FOR UNKNOWN INDICATION
     Dosage: UNK
     Route: 065
  9. EXELON [Suspect]
     Active Substance: RIVASTIGMINE TARTRATE
     Indication: COGNITIVE DISORDER
     Dosage: UNK
     Route: 065
     Dates: start: 20150722, end: 20151103
  10. ENALAPRIL MALEATE AND HCTZ [Concomitant]
     Indication: PRODUCT USED FOR UNKNOWN INDICATION
     Dosage: 01TABLET IN THE MORNING
     Route: 065
  11. PARACETAMOL [Concomitant]
     Active Substance: ACETAMINOPHEN
     Indication: PRODUCT USED FOR UNKNOWN INDICATION
     Dosage: UNK
     Route: 065
  12. CYMBALTA [Suspect]
     Active Substance: DULOXETINE HYDROCHLORIDE
     Dosage: 90 MG, UNK (DOSE INCREASED)
     Route: 065
     Dates: start: 20150915, end: 20150923
  13. HIDROXIL [Concomitant]
     Indication: PRODUCT USED FOR UNKNOWN INDICATION
     Dosage: 01 TABLET IN THE MORNING
     Route: 065
  14. LEVOGASTROL [Concomitant]
     Indication: PRODUCT USED FOR UNKNOWN INDICATION
     Dosage: 01 1 TABLET EVERY 8 HOURS
     Route: 065
  15. ALMAX [Concomitant]
     Indication: PRODUCT USED FOR UNKNOWN INDICATION
     Dosage: WHEN REQUIRED, PRN
     Route: 065

REACTIONS (2)
  - Hepatitis cholestatic [Recovered/Resolved]
  - Eosinophilia [Recovered/Resolved]

NARRATIVE: CASE EVENT DATE: 20150905
